FAERS Safety Report 9936915 (Version 1)
Quarter: 2014Q1

REPORT INFORMATION
  Report Type: Spontaneous
  Country: US (occurrence: None)
  Receive Date: 20140115
  Receipt Date: 20140115
  Transmission Date: 20141002
  Serious: No
  Sender: FDA-Public Use
  Company Number: 2013US002659

PATIENT
  Age: 52 Year
  Sex: Male

DRUGS (8)
  1. ICLUSIG (PONATINIB) TABLET, 45MG [Suspect]
     Indication: CHRONIC MYELOID LEUKAEMIA
     Route: 048
     Dates: start: 201308, end: 201308
  2. CELEXA (CITALOPRAM HYDROBROMIDE) [Concomitant]
  3. METFORMIN (METFORMIN) [Concomitant]
  4. JANUVIA (SITAGLIPTIN PHOSPHATE) [Suspect]
  5. PIOGLITAZONE (PIOGLITAZONE) [Concomitant]
  6. PANTOPRAZOLE (PIOGLITAZONE) [Concomitant]
  7. PANTOPRAZOLE (PANTOPRAZOLE) [Concomitant]
  8. LISINOPRIL (LISINOPRIL) [Concomitant]

REACTIONS (1)
  - Asthenia [None]
